FAERS Safety Report 18323481 (Version 2)
Quarter: 2020Q4

REPORT INFORMATION
  Report Type: Spontaneous
  Country: US (occurrence: US)
  Receive Date: 20200929
  Receipt Date: 20201120
  Transmission Date: 20210113
  Serious: No
  Sender: FDA-Public Use
  Company Number: US-MYLANLABS-2020M1081014

PATIENT
  Sex: Female
  Weight: 53 kg

DRUGS (2)
  1. PROGESTERONE. [Concomitant]
     Active Substance: PROGESTERONE
     Dosage: UNK
  2. ESTRADIOL TRANSDERMAL SYSTEM [Suspect]
     Active Substance: ESTRADIOL
     Indication: HOT FLUSH
     Dosage: 1 PATCH TWICE WEEKLY
     Route: 062
     Dates: start: 20200801, end: 202009

REACTIONS (7)
  - Application site urticaria [Unknown]
  - Application site irritation [Unknown]
  - Application site reaction [Unknown]
  - Application site acne [Unknown]
  - Application site dryness [Unknown]
  - Application site erythema [Unknown]
  - Application site pruritus [Unknown]
